FAERS Safety Report 20644155 (Version 1)
Quarter: 2022Q1

REPORT INFORMATION
  Report Type: Spontaneous
  Country: US (occurrence: None)
  Receive Date: 20220326
  Receipt Date: 20220326
  Transmission Date: 20220423
  Serious: No
  Sender: FDA-Public Use
  Company Number: None

PATIENT
  Age: 54 Year
  Sex: Male
  Weight: 89.36 kg

DRUGS (1)
  1. IMATINIB. [Suspect]
     Active Substance: IMATINIB MESYLATE
     Indication: Plasma cell myeloma
     Dosage: 400 MG DAILY ORAL?
     Route: 048
     Dates: start: 20220302

REACTIONS (1)
  - Spinal operation [None]

NARRATIVE: CASE EVENT DATE: 20220322
